FAERS Safety Report 12867106 (Version 1)
Quarter: 2016Q4

REPORT INFORMATION
  Report Type: Spontaneous
  Country: US (occurrence: US)
  Receive Date: 20161020
  Receipt Date: 20161020
  Transmission Date: 20170207
  Serious: No
  Sender: FDA-Public Use
  Company Number: US-JAZZ-2016-US-014806

PATIENT
  Sex: Female

DRUGS (23)
  1. CLONAZEPAM. [Concomitant]
     Active Substance: CLONAZEPAM
  2. OPIODUR [Concomitant]
  3. PROGESTERONE. [Concomitant]
     Active Substance: PROGESTERONE
  4. XYREM [Suspect]
     Active Substance: SODIUM OXYBATE
     Dosage: 4.5 G, BID
     Route: 048
     Dates: start: 201309
  5. LORAZEPAM. [Concomitant]
     Active Substance: LORAZEPAM
  6. DEPLIN [Concomitant]
     Active Substance: LEVOMEFOLATE CALCIUM
  7. VIVELLE-DOT [Concomitant]
     Active Substance: ESTRADIOL
  8. SUMATRIPTAN. [Concomitant]
     Active Substance: SUMATRIPTAN
  9. HYDROCODONE/ACETAMINOPHEN [Concomitant]
     Active Substance: ACETAMINOPHEN\HYDROCODONE
  10. MIGRA [Concomitant]
  11. XYREM [Suspect]
     Active Substance: SODIUM OXYBATE
     Indication: NARCOLEPSY
     Dosage: 2.25 G, BID
     Route: 048
     Dates: start: 201307, end: 201308
  12. FISH OIL [Concomitant]
     Active Substance: FISH OIL
  13. RIZATRIPTAN. [Concomitant]
     Active Substance: RIZATRIPTAN
  14. DIMACOL [Concomitant]
  15. RITALIN [Concomitant]
     Active Substance: METHYLPHENIDATE HYDROCHLORIDE
  16. AMBIEN [Concomitant]
     Active Substance: ZOLPIDEM TARTRATE
  17. MAGNESIUM OXIDE. [Concomitant]
     Active Substance: MAGNESIUM OXIDE
  18. LEXAPRO [Concomitant]
     Active Substance: ESCITALOPRAM OXALATE
  19. NATURE-THROID [Concomitant]
     Active Substance: THYROID, PORCINE
  20. ARMOUR THYROID [Concomitant]
     Active Substance: THYROID, PORCINE
  21. XYREM [Suspect]
     Active Substance: SODIUM OXYBATE
     Indication: CATAPLEXY
     Dosage: DOSE ADJUSTMENTS
     Route: 048
     Dates: start: 201308, end: 201309
  22. CYTOMEL [Concomitant]
     Active Substance: LIOTHYRONINE SODIUM
  23. VITAMIN C [Concomitant]
     Active Substance: ASCORBIC ACID

REACTIONS (2)
  - Pre-existing condition improved [Unknown]
  - Therapeutic response unexpected [Unknown]
